FAERS Safety Report 19054608 (Version 1)
Quarter: 2021Q1

REPORT INFORMATION
  Report Type: Spontaneous
  Country: US (occurrence: US)
  Receive Date: 20210324
  Receipt Date: 20210324
  Transmission Date: 20210420
  Serious: Yes (Other)
  Sender: FDA-Public Use
  Company Number: US-GLAXOSMITHKLINE-US2021GSK068876

PATIENT
  Sex: Male

DRUGS (6)
  1. ZANTAC [Suspect]
     Active Substance: RANITIDINE HYDROCHLORIDE
     Indication: RENAL CANCER
     Dosage: 150 MG, QD
     Route: 065
     Dates: start: 200304, end: 201506
  2. RANITIDINE CAPSULE [Suspect]
     Active Substance: RANITIDINE
     Indication: RENAL CANCER
     Dosage: 150 MG, QD
     Route: 065
     Dates: start: 200901, end: 201601
  3. RANITIDINE. [Suspect]
     Active Substance: RANITIDINE
     Indication: RENAL CANCER
     Dosage: 150 MG, QD
     Route: 065
     Dates: start: 200901, end: 201601
  4. RANITIDINE. [Suspect]
     Active Substance: RANITIDINE
     Indication: RENAL CANCER
     Dosage: 150 MG, QD
     Route: 065
     Dates: start: 200901, end: 201601
  5. ZANTAC [Suspect]
     Active Substance: RANITIDINE HYDROCHLORIDE
     Indication: RENAL CANCER
     Dosage: 150 MG, QD
     Route: 065
     Dates: start: 200304, end: 201506
  6. RANITIDINE. [Suspect]
     Active Substance: RANITIDINE
     Indication: RENAL CANCER
     Dosage: 150 MG, QD
     Route: 065
     Dates: start: 200901, end: 201601

REACTIONS (1)
  - Renal cancer [Unknown]
